FAERS Safety Report 25611169 (Version 1)
Quarter: 2025Q3

REPORT INFORMATION
  Report Type: Spontaneous
  Country: EU (occurrence: EU)
  Receive Date: 20250728
  Receipt Date: 20250728
  Transmission Date: 20251021
  Serious: Yes (Other)
  Sender: AUROBINDO
  Company Number: EU-AEMPS-1722287

PATIENT
  Age: 80 Year
  Sex: Female

DRUGS (1)
  1. TENOFOVIR DISOPROXIL [Suspect]
     Active Substance: TENOFOVIR DISOPROXIL
     Indication: Chronic hepatitis B
     Dosage: 245 MILLIGRAM, ONCE A DAY
     Route: 048
     Dates: start: 20150701

REACTIONS (1)
  - Renal tubular injury [Unknown]

NARRATIVE: CASE EVENT DATE: 20250505
